FAERS Safety Report 21098363 (Version 1)
Quarter: 2022Q3

REPORT INFORMATION
  Report Type: Spontaneous
  Country: US (occurrence: None)
  Receive Date: 20220718
  Receipt Date: 20220718
  Transmission Date: 20221027
  Serious: No
  Sender: FDA-Public Use
  Company Number: None

PATIENT
  Sex: Male

DRUGS (1)
  1. UDENYCA [Suspect]
     Active Substance: PEGFILGRASTIM-CBQV
     Indication: Bone cancer
     Dosage: 6MG ON DAY 6 SUB-Q?
     Route: 058
     Dates: start: 20220328

REACTIONS (2)
  - Impaired healing [None]
  - Therapy interrupted [None]
